FAERS Safety Report 24791701 (Version 1)
Quarter: 2024Q4

REPORT INFORMATION
  Report Type: Spontaneous
  Country: US (occurrence: US)
  Receive Date: 20241231
  Receipt Date: 20241231
  Transmission Date: 20250115
  Serious: No
  Sender: SANOFI AVENTIS
  Company Number: US-SA-2024SA286557

PATIENT
  Sex: Female
  Weight: 93.18 kg

DRUGS (6)
  1. DUPIXENT [Suspect]
     Active Substance: DUPILUMAB
     Indication: Dermatitis atopic
     Dosage: 300 MG, QOW
     Route: 058
  2. VALSARTAN [Concomitant]
     Active Substance: VALSARTAN
  3. REPATHA [Concomitant]
     Active Substance: EVOLOCUMAB
  4. ALPRAZOLAM [Concomitant]
     Active Substance: ALPRAZOLAM
  5. TACROLIMUS [Concomitant]
     Active Substance: TACROLIMUS
  6. TRIAMCINOLONE ACETONIDE [Concomitant]
     Active Substance: TRIAMCINOLONE ACETONIDE

REACTIONS (4)
  - Brain fog [Unknown]
  - Limb discomfort [Unknown]
  - Gait disturbance [Unknown]
  - Arthralgia [Unknown]
